FAERS Safety Report 4422422-5 (Version None)
Quarter: 2004Q3

REPORT INFORMATION
  Report Type: 
  Country: None (occurrence: None)
  Receive Date: 20040806
  Receipt Date: 20040720
  Transmission Date: 20050211
  Serious: Yes (Hospitalization)
  Sender: FDA-Public Use
  Company Number: US_000440280

PATIENT
  Age: 4 Year
  Sex: Female
  Weight: 76 kg

DRUGS (4)
  1. HUMALOG [Suspect]
     Indication: DIABETES MELLITUS
     Dates: start: 20000601, end: 20040501
  2. HUMULIN R [Suspect]
     Indication: DIABETES MELLITUS
     Dosage: 21 U DAY
     Dates: start: 20000101, end: 20000601
  3. HUMULIN N [Suspect]
     Indication: DIABETES MELLITUS
     Dosage: 36 U/2 DAY
     Dates: start: 20000601, end: 20040501
  4. FLUORIDE [Concomitant]

REACTIONS (5)
  - BLOOD GLUCOSE FLUCTUATION [None]
  - BLOOD KETONE BODY INCREASED [None]
  - HYPERGLYCAEMIA [None]
  - HYPOGLYCAEMIA [None]
  - WEIGHT FLUCTUATION [None]
